FAERS Safety Report 24106194 (Version 4)
Quarter: 2024Q3

REPORT INFORMATION
  Report Type: Report from Study
  Country: AR (occurrence: AR)
  Receive Date: 20240717
  Receipt Date: 20240807
  Transmission Date: 20241016
  Serious: No
  Sender: JOHNSON AND JOHNSON
  Company Number: AR-JNJFOC-20240724806

PATIENT
  Age: 59 Year
  Sex: Female
  Weight: 72 kg

DRUGS (1)
  1. SIMPONI [Suspect]
     Active Substance: GOLIMUMAB
     Indication: Rheumatoid arthritis
     Dosage: STRENGTH: 50.00 MG / 0.50 ML
     Route: 058
     Dates: start: 20240423

REACTIONS (5)
  - Device deployment issue [Unknown]
  - Contusion [Unknown]
  - Pain [Unknown]
  - Somnolence [Unknown]
  - Hypertension [Unknown]

NARRATIVE: CASE EVENT DATE: 20240423
